FAERS Safety Report 7849879-1 (Version None)
Quarter: 2011Q4

REPORT INFORMATION
  Report Type: 
  Country: None (occurrence: None)
  Receive Date: 20111025
  Receipt Date: 20111025
  Transmission Date: 20120403
  Serious: Yes (Hospitalization)
  Sender: FDA-Public Use
  Company Number: None

PATIENT
  Sex: Male
  Weight: 74.9 kg

DRUGS (2)
  1. CARBOPLATIN [Suspect]
     Dosage: 530 MG
     Dates: end: 20110907
  2. ETOPOSIDE [Suspect]
     Dosage: 198 MG
     Dates: end: 20110907

REACTIONS (2)
  - PLATELET COUNT DECREASED [None]
  - TOXICITY TO VARIOUS AGENTS [None]
